FAERS Safety Report 6314814-4 (Version None)
Quarter: 2009Q3

REPORT INFORMATION
  Report Type: 
  Country: None (occurrence: None)
  Receive Date: 20090817
  Receipt Date: 20090817
  Transmission Date: 20100115
  Serious: Yes (Other)
  Sender: FDA-Public Use
  Company Number: None

PATIENT
  Age: 27 Year
  Sex: Female
  Weight: 54.4316 kg

DRUGS (2)
  1. LEXAPRO [Suspect]
     Indication: ANXIETY
     Dosage: 10 MG AT BEDTIME PO
     Route: 048
     Dates: start: 20090717, end: 20090718
  2. LEXAPRO [Suspect]
     Indication: DEPRESSION
     Dosage: 10 MG AT BEDTIME PO
     Route: 048
     Dates: start: 20090717, end: 20090718

REACTIONS (11)
  - ANXIETY [None]
  - DIARRHOEA [None]
  - DIZZINESS [None]
  - DRY MOUTH [None]
  - EYE DISORDER [None]
  - FORMICATION [None]
  - HYPERHIDROSIS [None]
  - INSOMNIA [None]
  - MYDRIASIS [None]
  - TACHYCARDIA [None]
  - TREMOR [None]
